FAERS Safety Report 17100723 (Version 2)
Quarter: 2019Q4

REPORT INFORMATION
  Report Type: Spontaneous
  Country: DE (occurrence: DE)
  Receive Date: 20191202
  Receipt Date: 20191205
  Transmission Date: 20200122
  Serious: Yes (Hospitalization)
  Sender: FDA-Public Use
  Company Number: DE-MYLANLABS-2019M1115831

PATIENT
  Age: 88 Year
  Sex: Male
  Weight: 88 kg

DRUGS (12)
  1. ZOPICLON [Concomitant]
     Active Substance: ZOPICLONE
     Dosage: 7.5 MILLIGRAM, QD (0-0-0-1, TABLETTEN)
     Route: 048
  2. RAMIPRIL. [Suspect]
     Active Substance: RAMIPRIL
     Dosage: 25 MILLIGRAM, QD (1-0-0-0, TABLETTEN)
     Route: 048
  3. TORASEMIDE [Suspect]
     Active Substance: TORSEMIDE
     Indication: PRODUCT USED FOR UNKNOWN INDICATION
     Dosage: 30 MILLIGRAM, QD (1-0-0-0, TABLETTEN)
     Route: 048
  4. OMEPRAZOL                          /00661201/ [Concomitant]
     Active Substance: OMEPRAZOLE
     Dosage: 40 MILLIGRAM, QD (1-0-0-0, TABLETTEN)
     Route: 048
  5. DONEPEZIL. [Concomitant]
     Active Substance: DONEPEZIL
     Dosage: 10 MILLIGRAM (0-0-0.5-0, TABLETTEN)
     Route: 048
  6. ADENURIC [Concomitant]
     Active Substance: FEBUXOSTAT
     Dosage: 120 MILLIGRAM, QD (1-0-0-0, TABLETTEN)
     Route: 048
  7. MOVICOL [Concomitant]
     Active Substance: POLYETHYLENE GLYCOL 3350\POTASSIUM CHLORIDE\SODIUM BICARBONATE\SODIUM CHLORIDE
     Dosage: 13.125 MILLIGRAM, BID (1-0-1-0, BEUTEL)
     Route: 048
  8. METOPROLOL. [Concomitant]
     Active Substance: METOPROLOL
     Dosage: 47.5 MILLIGRAM, BID (1-0-1-0, TABLETTEN)
     Route: 048
  9. ASPIRIN. [Concomitant]
     Active Substance: ASPIRIN
     Dosage: 100 MILLIGRAM, QD (1-0-0-0, TABLETTEN)
     Route: 048
  10. ALDACTONE [Suspect]
     Active Substance: SPIRONOLACTONE
     Indication: PRODUCT USED FOR UNKNOWN INDICATION
     Dosage: 25 MILLIGRAM, QD (1-0-0-0, TABLETTEN)
     Route: 048
  11. FOLSAN [Concomitant]
     Active Substance: FOLIC ACID
     Dosage: 5 MILLIGRAM, QD (1-0-0-0, TABLETTEN)
     Route: 048
  12. FERROUS SULFATE. [Concomitant]
     Active Substance: FERROUS SULFATE
     Dosage: NK MG, 1-0-0-0, KAPSELN
     Route: 048

REACTIONS (4)
  - Abdominal pain lower [Unknown]
  - Product prescribing error [Unknown]
  - Dizziness [Unknown]
  - Abdominal pain upper [Unknown]
